FAERS Safety Report 5067301-8 (Version None)
Quarter: 2006Q3

REPORT INFORMATION
  Report Type: 
  Country: None (occurrence: None)
  Receive Date: 20060714
  Receipt Date: 20060428
  Transmission Date: 20061208
  Serious: No
  Sender: FDA-Public Use
  Company Number: 2006SP001873

PATIENT
  Age: 67 Year
  Sex: Male
  Weight: 73.4827 kg

DRUGS (6)
  1. LUNESTA [Suspect]
     Indication: INSOMNIA
     Dosage: 2 MG; ORAL
     Route: 048
     Dates: start: 20060101, end: 20060427
  2. ALTACE [Concomitant]
  3. COREG [Concomitant]
  4. ALLEGRA [Concomitant]
  5. PROSCAR [Concomitant]
  6. URSO [Concomitant]

REACTIONS (2)
  - CHILLS [None]
  - DEPRESSION [None]
